FAERS Safety Report 6677661-X (Version None)
Quarter: 2010Q2

REPORT INFORMATION
  Report Type: 
  Country: None (occurrence: None)
  Receive Date: 20100412
  Receipt Date: 20100310
  Transmission Date: 20101027
  Serious: No
  Sender: FDA-Public Use
  Company Number: CA-ALEXION-A201000274

PATIENT
  Sex: Female

DRUGS (4)
  1. SOLIRIS [Suspect]
     Dosage: UNK
     Route: 042
     Dates: start: 20100305
  2. PREDNISOLONE [Concomitant]
     Dosage: 20 MG, QD
  3. PANTOLOC                           /01263201/ [Concomitant]
     Dosage: 40 MG, BID
  4. ACTONEL [Concomitant]
     Dosage: 35 MG, QWK

REACTIONS (1)
  - HEADACHE [None]
